FAERS Safety Report 21155773 (Version 1)
Quarter: 2022Q3

REPORT INFORMATION
  Report Type: Spontaneous
  Country: US (occurrence: None)
  Receive Date: 20220729
  Receipt Date: 20220729
  Transmission Date: 20221026
  Serious: Yes (Other)
  Sender: FDA-Public Use
  Company Number: None

PATIENT
  Age: 52 Year
  Sex: Female
  Weight: 77.85 kg

DRUGS (1)
  1. MAGNESIUM CITRATE [Suspect]
     Active Substance: MAGNESIUM CITRATE
     Indication: Constipation
     Dosage: OTHER QUANTITY : 10 OUNCE(S);?FREQUENCY : DAILY;?
     Route: 048
     Dates: start: 20210101, end: 20220726

REACTIONS (6)
  - Urticaria [None]
  - Rash [None]
  - Rash [None]
  - Rash [None]
  - Scar [None]
  - Recalled product administered [None]

NARRATIVE: CASE EVENT DATE: 20210914
